FAERS Safety Report 5215485-0 (Version None)
Quarter: 2007Q1

REPORT INFORMATION
  Report Type: 
  Country: None (occurrence: None)
  Receive Date: 20070123
  Receipt Date: 20070112
  Transmission Date: 20070707
  Serious: Yes (Hospitalization)
  Sender: FDA-Public Use
  Company Number: US-JNJFOC-20070103399

PATIENT
  Age: 45 Year
  Sex: Female

DRUGS (6)
  1. FENTANYL TRANSDERMAL SYSTEM [Suspect]
     Indication: DRUG USE FOR UNKNOWN INDICATION
     Route: 062
  2. OXYCODONE HCL [Suspect]
     Indication: DRUG USE FOR UNKNOWN INDICATION
     Route: 065
  3. BENZODIAZEPINE [Concomitant]
     Route: 065
  4. SSRI [Concomitant]
     Route: 065
  5. AMITRIPTYLINE HCL [Concomitant]
     Route: 065
  6. AMIRONE [Concomitant]

REACTIONS (1)
  - BRAIN OEDEMA [None]
